FAERS Safety Report 8956013 (Version 2)
Quarter: 2013Q4

REPORT INFORMATION
  Report Type: Spontaneous
  Country: GB (occurrence: GB)
  Receive Date: 20121210
  Receipt Date: 20131008
  Transmission Date: 20140711
  Serious: Yes (Other)
  Sender: FDA-Public Use
  Company Number: GB-ASTRAZENECA-2012SE90523

PATIENT
  Age: 18262 Day
  Sex: Female
  Weight: 49 kg

DRUGS (1)
  1. GOSERELIN [Suspect]
     Indication: UTERINE LEIOMYOMA
     Route: 058
     Dates: start: 2012

REACTIONS (2)
  - Suicidal ideation [Recovered/Resolved]
  - Depression [Recovered/Resolved]
